FAERS Safety Report 9333768 (Version 2)
Quarter: 2013Q2

REPORT INFORMATION
  Report Type: Spontaneous
  Country: US (occurrence: None)
  Receive Date: 20130604
  Receipt Date: 20130617
  Transmission Date: 20140414
  Serious: Yes (Other)
  Sender: FDA-Public Use
  Company Number: ADR-2013-00916

PATIENT
  Age: 30 Year
  Sex: Male

DRUGS (1)
  1. BACLOFEN [Suspect]
     Indication: MUSCLE SPASTICITY
     Dosage: 100; SEE B5

REACTIONS (14)
  - Gastric disorder [None]
  - Nausea [None]
  - Drug effect decreased [None]
  - Hypoaesthesia [None]
  - Movement disorder [None]
  - Muscle spasms [None]
  - Depression [None]
  - Activities of daily living impaired [None]
  - Urinary tract infection [None]
  - Incorrect dose administered [None]
  - Implant site reaction [None]
  - Procedural complication [None]
  - Suicidal ideation [None]
  - Tremor [None]
